FAERS Safety Report 24577718 (Version 1)
Quarter: 2024Q4

REPORT INFORMATION
  Report Type: Spontaneous
  Country: RS (occurrence: RS)
  Receive Date: 20241104
  Receipt Date: 20241104
  Transmission Date: 20250115
  Serious: Yes (Other)
  Sender: ROCHE
  Company Number: RS-ROCHE-10000121203

PATIENT
  Age: 61 Year
  Sex: Male

DRUGS (1)
  1. ATEZOLIZUMAB [Suspect]
     Active Substance: ATEZOLIZUMAB
     Indication: Adenocarcinoma
     Dosage: LAST DATE : 07/SEP/2024
     Route: 065
     Dates: start: 20240812

REACTIONS (2)
  - Metastases to liver [Unknown]
  - Metastases to lung [Unknown]
